FAERS Safety Report 5212734-X (Version None)
Quarter: 2006Q4

REPORT INFORMATION
  Report Type: 
  Country: None (occurrence: None)
  Receive Date: 20061115
  Receipt Date: 20060814
  Transmission Date: 20070319
  Serious: No
  Sender: FDA-Public Use
  Company Number: 200615226BWH

PATIENT
  Age: 59 Year
  Sex: Male

DRUGS (2)
  1. NEXAVAR [Suspect]
     Indication: RENAL CELL CARCINOMA STAGE UNSPECIFIED
     Dosage: 400 MG, BID; ORAL
     Route: 048
     Dates: start: 20060801, end: 20060810
  2. VICODIN [Concomitant]

REACTIONS (3)
  - DIARRHOEA [None]
  - PRURITUS [None]
  - RASH [None]
